FAERS Safety Report 4411021-7 (Version None)
Quarter: 2004Q3

REPORT INFORMATION
  Report Type: 
  Country: None (occurrence: None)
  Receive Date: 20040726
  Receipt Date: 20040721
  Transmission Date: 20050211
  Serious: Yes (Other)
  Sender: FDA-Public Use
  Company Number: 04-07-1043

PATIENT
  Age: 47 Year
  Sex: Female

DRUGS (2)
  1. CLOZAPINE [Suspect]
     Dosage: 300 MG QD ORAL
     Route: 048
     Dates: start: 20020801, end: 20040720
  2. CHEMOTHERAPY [Suspect]
     Indication: LUNG CANCER METASTATIC

REACTIONS (2)
  - LUNG CANCER METASTATIC [None]
  - WHITE BLOOD CELL COUNT DECREASED [None]
